FAERS Safety Report 20890174 (Version 5)
Quarter: 2022Q3

REPORT INFORMATION
  Report Type: Report from Study
  Country: KR (occurrence: KR)
  Receive Date: 20220530
  Receipt Date: 20220929
  Transmission Date: 20221027
  Serious: No
  Sender: FDA-Public Use
  Company Number: KP-NOVARTISPH-NVSC2022KR123824

PATIENT
  Age: 76 Year
  Sex: Female

DRUGS (3)
  1. BEOVU [Suspect]
     Active Substance: BROLUCIZUMAB-DBLL
     Indication: Neovascular age-related macular degeneration
     Dosage: 6 MG
     Route: 031
     Dates: start: 20220418, end: 20220418
  2. VIGAMOX [Concomitant]
     Active Substance: MOXIFLOXACIN HYDROCHLORIDE
     Indication: Evidence based treatment
     Dosage: 1 DRP, QH (24)
     Route: 047
     Dates: start: 20220418, end: 202204
  3. HYALQ [Concomitant]
     Indication: Dry eye
     Dosage: UNK (FORMULATION: OPTHALMIC SOLUTION 0.35 ML)
     Route: 047
     Dates: start: 20220718

REACTIONS (3)
  - Eye inflammation [Recovering/Resolving]
  - Visual acuity reduced [Unknown]
  - Anterior chamber cell [Recovered/Resolved]

NARRATIVE: CASE EVENT DATE: 20220509
